FAERS Safety Report 9820623 (Version 1)
Quarter: 2013Q4

REPORT INFORMATION
  Report Type: Spontaneous
  Country: US (occurrence: None)
  Receive Date: 20131025
  Receipt Date: 20131025
  Transmission Date: 20140711
  Serious: No
  Sender: FDA-Public Use
  Company Number: AP356-00048-SPO-US

PATIENT
  Age: 74 Year
  Sex: Female
  Weight: 65 kg

DRUGS (4)
  1. BELVIQ [Suspect]
     Indication: PRODUCT USED FOR UNKNOWN INDICATION
     Route: 048
     Dates: start: 20130801, end: 20130804
  2. SYNTHROID (LEVOTHYROXINE SODIUM) [Concomitant]
  3. METOPROLOL (METOPROLOL) [Concomitant]
  4. ATORVASTATIN (ATORVASTATIN) [Concomitant]

REACTIONS (6)
  - Coordination abnormal [None]
  - Fatigue [None]
  - Visual acuity reduced [None]
  - Chills [None]
  - Dizziness [None]
  - Dry mouth [None]
